FAERS Safety Report 24220309 (Version 1)
Quarter: 2024Q3

REPORT INFORMATION
  Report Type: Other
  Country: US (occurrence: US)
  Receive Date: 20240817
  Receipt Date: 20240817
  Transmission Date: 20241016
  Serious: No
  Sender: TRAVERE THERAPEUTICS
  Company Number: US-TRAVERE-2024TVT00628

PATIENT
  Sex: Female

DRUGS (2)
  1. FILSPARI [Suspect]
     Active Substance: SPARSENTAN
     Indication: Product used for unknown indication
     Route: 048
  2. FILSPARI [Suspect]
     Active Substance: SPARSENTAN
     Route: 048

REACTIONS (4)
  - Joint swelling [Unknown]
  - Swelling face [Unknown]
  - Liver function test increased [Unknown]
  - Oedema [Unknown]
